FAERS Safety Report 6008149-7 (Version None)
Quarter: 2008Q4

REPORT INFORMATION
  Report Type: 
  Country: None (occurrence: None)
  Receive Date: 20081217
  Receipt Date: 20081104
  Transmission Date: 20090506
  Serious: No
  Sender: FDA-Public Use
  Company Number: US-ASTRAZENECA-2008UW14382

PATIENT
  Age: 724 Month
  Sex: Female

DRUGS (3)
  1. CRESTOR [Suspect]
     Dosage: 20 MG
     Route: 048
     Dates: start: 20080501
  2. TRILAFON [Concomitant]
  3. EFFEXOR [Concomitant]

REACTIONS (2)
  - APHASIA [None]
  - MYALGIA [None]
